FAERS Safety Report 19602003 (Version 1)
Quarter: 2021Q3

REPORT INFORMATION
  Report Type: Report from Study
  Country: GB (occurrence: GB)
  Receive Date: 20210722
  Receipt Date: 20210722
  Transmission Date: 20211014
  Serious: Yes (Life-Threatening, Hospitalization)
  Sender: FDA-Public Use
  Company Number: GB-BAXTER-2021BAX021541

PATIENT
  Age: 59 Year
  Sex: Male

DRUGS (2)
  1. COMPOUND SODIUM LACTATE SOLUTION FOR INFUSION [Suspect]
     Active Substance: CALCIUM CHLORIDE\POTASSIUM CHLORIDE\SODIUM CHLORIDE\SODIUM LACTATE
     Indication: LOSS OF CONSCIOUSNESS
     Dosage: DAILY INFUSION DURATION: 12 HOURS
     Route: 042
     Dates: start: 20210712, end: 20210713
  2. PARENTERAL NUTRITION [Suspect]
     Active Substance: AMINO ACIDS\DEXTROSE\ELECTROLYTES NOS
     Indication: PRODUCT USED FOR UNKNOWN INDICATION
     Route: 065
     Dates: start: 20210712

REACTIONS (1)
  - Unresponsive to stimuli [Unknown]

NARRATIVE: CASE EVENT DATE: 20210712
